FAERS Safety Report 18124607 (Version 2)
Quarter: 2020Q3

REPORT INFORMATION
  Report Type: Spontaneous
  Country: US (occurrence: US)
  Receive Date: 20200807
  Receipt Date: 20200820
  Transmission Date: 20201103
  Serious: Yes (Hospitalization, Other)
  Sender: FDA-Public Use
  Company Number: US-NOVOPROD-744028

PATIENT
  Age: 69 Year
  Sex: Female

DRUGS (2)
  1. LEVEMIR [Suspect]
     Active Substance: INSULIN DETEMIR
     Indication: TYPE 2 DIABETES MELLITUS
     Dosage: 100 PER DAY
     Route: 058
     Dates: start: 2010
  2. NOVOLOG [Suspect]
     Active Substance: INSULIN ASPART
     Indication: TYPE 2 DIABETES MELLITUS
     Dosage: 60 UNITS PLUS SLIDING SCALE PER DAY
     Route: 058
     Dates: start: 2000

REACTIONS (8)
  - Intervertebral disc protrusion [Unknown]
  - Trigger finger [Recovered/Resolved]
  - Intervertebral disc protrusion [Unknown]
  - Carpal tunnel syndrome [Not Recovered/Not Resolved]
  - Trigger finger [Recovered/Resolved]
  - Intervertebral disc protrusion [Unknown]
  - Trigger finger [Recovered/Resolved]
  - Intervertebral disc protrusion [Unknown]

NARRATIVE: CASE EVENT DATE: 200004
